FAERS Safety Report 24565028 (Version 6)
Quarter: 2024Q4

REPORT INFORMATION
  Report Type: Report from Study
  Country: CR (occurrence: CR)
  Receive Date: 20241030
  Receipt Date: 20241216
  Transmission Date: 20250114
  Serious: Yes (Other)
  Sender: NOVARTIS
  Company Number: CR-002147023-NVSC2024CR209642

PATIENT
  Sex: Female
  Weight: 57 kg

DRUGS (12)
  1. KISQALI [Suspect]
     Active Substance: RIBOCICLIB
     Indication: Breast cancer metastatic
     Dosage: 600 MG, QD
     Route: 048
     Dates: start: 20240910, end: 20241023
  2. KISQALI [Suspect]
     Active Substance: RIBOCICLIB
     Dosage: 500 MG, QD
     Route: 048
  3. LETROZOLE [Suspect]
     Active Substance: LETROZOLE
     Indication: Product used for unknown indication
     Dosage: UNK, QD
     Route: 048
     Dates: start: 2022
  4. ZOMETA [Suspect]
     Active Substance: ZOLEDRONIC ACID
     Indication: Product used for unknown indication
     Dosage: UNK, Q3MO
     Route: 065
     Dates: start: 2022
  5. TAMOXIFEN [Suspect]
     Active Substance: TAMOXIFEN
     Indication: Product used for unknown indication
     Dosage: UNK
     Route: 065
  6. ANASTROZOLE [Suspect]
     Active Substance: ANASTROZOLE
     Indication: Product used for unknown indication
     Dosage: UNK (START DATE: APPROXIMATELY 5 YEARS AGO)
     Route: 065
  7. FULVESTRANT [Concomitant]
     Active Substance: FULVESTRANT
     Indication: Product used for unknown indication
     Dosage: 2 DOSAGE FORM (2 INJECTION), EVERY 28 DAYS
     Route: 065
  8. FULVESTRANT [Concomitant]
     Active Substance: FULVESTRANT
     Dosage: 2 DOSAGE FORM, QMO
     Route: 065
  9. FULVESTRANT [Concomitant]
     Active Substance: FULVESTRANT
     Dosage: UNK
     Route: 065
  10. EPIRUBICIN;FLUOROURACIL [Concomitant]
     Indication: Product used for unknown indication
     Dosage: UNK
     Route: 065
  11. PALBOCICLIB [Concomitant]
     Active Substance: PALBOCICLIB
     Indication: Product used for unknown indication
     Dosage: 1 DOSAGE FORM (TABLET), QD
     Route: 065
     Dates: start: 2022
  12. LACTOSE [Concomitant]
     Active Substance: LACTOSE
     Indication: Product used for unknown indication
     Dosage: 1 DOSAGE FORM (CAPSULE)
     Route: 065

REACTIONS (24)
  - Drug hypersensitivity [Not Recovered/Not Resolved]
  - Condition aggravated [Unknown]
  - Metastases to bone [Unknown]
  - Dermatitis allergic [Unknown]
  - Diarrhoea [Unknown]
  - Chest pain [Unknown]
  - Dyspnoea [Unknown]
  - Joint stiffness [Recovering/Resolving]
  - Fatigue [Unknown]
  - Feeling cold [Unknown]
  - Somnolence [Unknown]
  - Erythema [Unknown]
  - Skin exfoliation [Unknown]
  - Peripheral swelling [Unknown]
  - Pain in extremity [Unknown]
  - Chest discomfort [Unknown]
  - Fall [Unknown]
  - Acne [Unknown]
  - Pruritus [Unknown]
  - Blood pressure decreased [Unknown]
  - Skin ulcer [Unknown]
  - Alopecia [Unknown]
  - Muscular weakness [Unknown]
  - Depressed mood [Unknown]

NARRATIVE: CASE EVENT DATE: 20240101
